FAERS Safety Report 6887248-1 (Version None)
Quarter: 2010Q3

REPORT INFORMATION
  Report Type: 
  Country: None (occurrence: None)
  Receive Date: 20100730
  Receipt Date: 20100419
  Transmission Date: 20110219
  Serious: No
  Sender: FDA-Public Use
  Company Number: A0855699A

PATIENT
  Age: 75 Year
  Sex: Male

DRUGS (1)
  1. FLOVENT [Suspect]
     Indication: COUGH
     Dosage: 2PUFF TWICE PER DAY
     Route: 055
     Dates: start: 20100101

REACTIONS (2)
  - COUGH [None]
  - DRUG INEFFECTIVE [None]
